FAERS Safety Report 14474610 (Version 1)
Quarter: 2018Q1

REPORT INFORMATION
  Report Type: Spontaneous
  Country: US (occurrence: US)
  Receive Date: 20180131
  Receipt Date: 20180131
  Transmission Date: 20180509
  Serious: Yes (Life-Threatening, Congenital Anomaly, Other)
  Sender: FDA-Public Use
  Company Number: None

PATIENT
  Age: 44 Year
  Sex: Male
  Weight: 84.82 kg

DRUGS (4)
  1. ZOLOFT [Concomitant]
     Active Substance: SERTRALINE HYDROCHLORIDE
  2. ATARAX [Suspect]
     Active Substance: HYDROXYZINE HYDROCHLORIDE
     Indication: INSOMNIA
     Dosage: 50 MG ATARAX 1-2 TABS AT NIGHT BY MOUTH
     Route: 048
     Dates: start: 201708
  3. HYDROXYZINE HCL [Suspect]
     Active Substance: HYDROXYZINE HYDROCHLORIDE
  4. ATARAX [Suspect]
     Active Substance: HYDROXYZINE HYDROCHLORIDE
     Indication: ANXIETY
     Dosage: 50 MG ATARAX 1-2 TABS AT NIGHT BY MOUTH
     Route: 048
     Dates: start: 201708

REACTIONS (6)
  - Paranoia [None]
  - Anxiety [None]
  - Pain [None]
  - Product use in unapproved indication [None]
  - Off label use [None]
  - Musculoskeletal pain [None]

NARRATIVE: CASE EVENT DATE: 20180119
